FAERS Safety Report 5503809-6 (Version None)
Quarter: 2007Q4

REPORT INFORMATION
  Report Type: 
  Country: None (occurrence: None)
  Receive Date: 20071101
  Receipt Date: 20071023
  Transmission Date: 20080405
  Serious: Yes (Other)
  Sender: FDA-Public Use
  Company Number: PHBS2007JP17839

PATIENT

DRUGS (3)
  1. TEGRETOL [Suspect]
     Dosage: 300 MG, QD
     Route: 048
     Dates: start: 20070508, end: 20071001
  2. FAMOTIDINE [Suspect]
     Dates: start: 20070508, end: 20071001
  3. GLYSENNID [Concomitant]

REACTIONS (3)
  - CRYPTOGENIC ORGANISING PNEUMONIA [None]
  - DYSPNOEA [None]
  - INTERSTITIAL LUNG DISEASE [None]
